FAERS Safety Report 19148560 (Version 1)
Quarter: 2021Q2

REPORT INFORMATION
  Report Type: Spontaneous
  Country: JP (occurrence: JP)
  Receive Date: 20210417
  Receipt Date: 20210417
  Transmission Date: 20210717
  Serious: Yes (Death, Life-Threatening, Hospitalization, Other)
  Sender: FDA-Public Use
  Company Number: JP-ASPEN-GLO2021JP002234

PATIENT

DRUGS (4)
  1. HEPARIN [Concomitant]
     Active Substance: HEPARIN SODIUM
     Indication: CEREBRAL INFARCTION
  2. AZITHROMYCIN ANHYDROUS. [Suspect]
     Active Substance: AZITHROMYCIN ANHYDROUS
     Indication: BACTERIAL INFECTION
     Dosage: 1500 MG
     Route: 065
  3. DECADRON [Suspect]
     Active Substance: DEXAMETHASONE
     Indication: COVID-19
     Dosage: 100 MG
     Route: 065
  4. HEPARIN [Concomitant]
     Active Substance: HEPARIN SODIUM
     Indication: COVID-19
     Dosage: 10000 IU
     Route: 065

REACTIONS (2)
  - Bronchopulmonary aspergillosis [Fatal]
  - Supraventricular tachycardia [Fatal]
